FAERS Safety Report 9688588 (Version 3)
Quarter: 2014Q1

REPORT INFORMATION
  Report Type: Spontaneous
  Country: US (occurrence: US)
  Receive Date: 20131114
  Receipt Date: 20140116
  Transmission Date: 20141002
  Serious: No
  Sender: FDA-Public Use
  Company Number: US-PFIZER INC-2013309074

PATIENT
  Age: 51 Year
  Sex: Male
  Weight: 70.3 kg

DRUGS (5)
  1. LYRICA [Suspect]
     Indication: NEURALGIA
     Dosage: 150 MG, 3X/DAY
     Route: 048
     Dates: start: 201305, end: 20131027
  2. LYRICA [Suspect]
     Indication: PAIN
     Dosage: 150 MG, 2X/DAY
     Route: 048
     Dates: start: 20131027
  3. LYRICA [Suspect]
     Indication: NEUROPATHY PERIPHERAL
  4. FENTANYL [Concomitant]
     Dosage: 50 UG, UNK
  5. NUCYNTA [Concomitant]
     Indication: NEURALGIA
     Dosage: 25 MG, UNK

REACTIONS (2)
  - Memory impairment [Not Recovered/Not Resolved]
  - Feeling abnormal [Not Recovered/Not Resolved]
